FAERS Safety Report 19254574 (Version 6)
Quarter: 2021Q4

REPORT INFORMATION
  Report Type: Report from Study
  Country: CA (occurrence: CA)
  Receive Date: 20210513
  Receipt Date: 20211204
  Transmission Date: 20220304
  Serious: Yes (Death, Hospitalization)
  Sender: FDA-Public Use
  Company Number: PHHY2016CA082090

PATIENT
  Age: 71 Year
  Sex: Male

DRUGS (4)
  1. SANDOSTATIN LAR DEPOT [Suspect]
     Active Substance: OCTREOTIDE ACETATE
     Indication: Carcinoid tumour
     Dosage: 30 MG, QMO (ONCE A MONTH)
     Route: 030
     Dates: start: 20160510
  2. SANDOSTATIN LAR DEPOT [Suspect]
     Active Substance: OCTREOTIDE ACETATE
  3. SANDOSTATIN LAR DEPOT [Suspect]
     Active Substance: OCTREOTIDE ACETATE
  4. PREDNISONE [Concomitant]
     Active Substance: PREDNISONE
     Indication: Product used for unknown indication
     Dosage: 3 MG, QD
     Route: 065

REACTIONS (9)
  - Death [Fatal]
  - Fall [Unknown]
  - Deep vein thrombosis [Unknown]
  - Hypotension [Unknown]
  - Prostatomegaly [Unknown]
  - Weight increased [Unknown]
  - Heart rate decreased [Unknown]
  - Application site bruise [Unknown]
  - Needle issue [Unknown]

NARRATIVE: CASE EVENT DATE: 20160701
